FAERS Safety Report 20557231 (Version 3)
Quarter: 2022Q2

REPORT INFORMATION
  Report Type: Spontaneous
  Country: US (occurrence: US)
  Receive Date: 20220307
  Receipt Date: 20220420
  Transmission Date: 20220721
  Serious: No
  Sender: FDA-Public Use
  Company Number: US-PFIZER INC-202200205665

PATIENT
  Age: 39 Year
  Sex: Female

DRUGS (1)
  1. SOMAVERT [Suspect]
     Active Substance: PEGVISOMANT
     Indication: Pituitary tumour
     Dosage: 30 MG, 2X/WEEK (INJECTED INTO STOMACH AREA/1ML SINGLE DOSE)
     Dates: start: 20220202

REACTIONS (4)
  - Wrong technique in device usage process [Unknown]
  - Liquid product physical issue [Unknown]
  - Off label use [Unknown]
  - Off label use [Unknown]

NARRATIVE: CASE EVENT DATE: 20220202
